FAERS Safety Report 4743163-0 (Version None)
Quarter: 2005Q3

REPORT INFORMATION
  Report Type: 
  Country: None (occurrence: None)
  Receive Date: 20050811
  Receipt Date: 20050725
  Transmission Date: 20060218
  Serious: Yes (Other)
  Sender: FDA-Public Use
  Company Number: 2005-130747-NL

PATIENT
  Age: 36 Year
  Sex: Female
  Weight: 63.5 kg

DRUGS (1)
  1. NUVARING [Suspect]
     Indication: CONTRACEPTION
     Dates: start: 20030101, end: 20050613

REACTIONS (4)
  - DYSARTHRIA [None]
  - HYPERTENSION [None]
  - HYPOAESTHESIA [None]
  - VISION BLURRED [None]
